FAERS Safety Report 14252662 (Version 1)
Quarter: 2017Q4

REPORT INFORMATION
  Report Type: Other
  Country: BH (occurrence: BH)
  Receive Date: 20171205
  Receipt Date: 20171205
  Transmission Date: 20180321
  Serious: Yes (Life-Threatening, Hospitalization)
  Sender: FDA-Public Use
  Company Number: BH-ATLAS PHARMACEUTICALS, LLC-2036758

PATIENT
  Age: 22 Year
  Sex: Female

DRUGS (1)
  1. METFORMIN [Suspect]
     Active Substance: METFORMIN HYDROCHLORIDE
     Indication: PRODUCT USED FOR UNKNOWN INDICATION
     Route: 065

REACTIONS (2)
  - Rhabdomyolysis [Recovered/Resolved]
  - Metabolic acidosis [Recovered/Resolved]
